FAERS Safety Report 17385059 (Version 1)
Quarter: 2020Q1

REPORT INFORMATION
  Report Type: Spontaneous
  Country: US (occurrence: US)
  Receive Date: 20200206
  Receipt Date: 20200206
  Transmission Date: 20200409
  Serious: No
  Sender: FDA-Public Use
  Company Number: US-ABBVIE-19K-163-3201755-00

PATIENT
  Age: 49 Year
  Sex: Male

DRUGS (1)
  1. HUMIRA [Suspect]
     Active Substance: ADALIMUMAB
     Indication: ANKYLOSING SPONDYLITIS
     Dosage: UNKNOWN
     Route: 058
     Dates: start: 2016

REACTIONS (11)
  - Incorrect dose administered [Unknown]
  - Mobility decreased [Unknown]
  - Feeling abnormal [Unknown]
  - Delayed delivery [Unknown]
  - Incorrect dose administered [Unknown]
  - Incorrect dose administered [Unknown]
  - Device issue [Unknown]
  - Device issue [Unknown]
  - Injection site reaction [Unknown]
  - Weight decreased [Unknown]
  - Device issue [Unknown]

NARRATIVE: CASE EVENT DATE: 201910
